FAERS Safety Report 7177494-4 (Version None)
Quarter: 2010Q4

REPORT INFORMATION
  Report Type: 
  Country: None (occurrence: None)
  Receive Date: 20101123
  Receipt Date: 20101006
  Transmission Date: 20110411
  Serious: No
  Sender: FDA-Public Use
  Company Number: 019964

PATIENT
  Sex: Female
  Weight: 71.7 kg

DRUGS (7)
  1. CIMZIA [Suspect]
     Indication: CROHN'S DISEASE
     Dosage: (400 MG 1X/28 DAYS SUBCUTANEOUS)
     Route: 058
     Dates: start: 20090909
  2. ENTOCORT EC [Concomitant]
  3. IMURAN [Concomitant]
  4. K-DUR [Concomitant]
  5. VITAMIN B-12 [Concomitant]
  6. CALCIUM [Concomitant]
  7. C-VITAMIN [Concomitant]

REACTIONS (3)
  - DEHYDRATION [None]
  - HYPERTENSION [None]
  - VESTIBULAR DISORDER [None]
